FAERS Safety Report 7684053-3 (Version None)
Quarter: 2011Q3

REPORT INFORMATION
  Report Type: 
  Country: None (occurrence: None)
  Receive Date: 20110815
  Receipt Date: 20110808
  Transmission Date: 20111222
  Serious: Yes (Other)
  Sender: FDA-Public Use
  Company Number: US-CEPHALON-US017545

PATIENT
  Sex: Male
  Weight: 66 kg

DRUGS (4)
  1. SELEGILINE [Suspect]
     Indication: NARCOLEPSY
     Route: 048
     Dates: start: 20050101, end: 20051101
  2. PROVIGIL [Suspect]
     Indication: NARCOLEPSY
     Route: 048
     Dates: start: 20051101
  3. SELEGILINE [Suspect]
     Indication: SLEEP APNOEA SYNDROME
  4. PROVIGIL [Suspect]
     Indication: SLEEP APNOEA SYNDROME
     Route: 048
     Dates: start: 20050101, end: 20051101

REACTIONS (5)
  - HYPERTENSION [None]
  - DRUG TOLERANCE [None]
  - EXTRAPYRAMIDAL DISORDER [None]
  - CARDIOMYOPATHY [None]
  - DISTURBANCE IN ATTENTION [None]
